FAERS Safety Report 22948834 (Version 2)
Quarter: 2023Q4

REPORT INFORMATION
  Report Type: Spontaneous
  Country: GB (occurrence: GB)
  Receive Date: 20230915
  Receipt Date: 20231018
  Transmission Date: 20240110
  Serious: Yes (Death, Other)
  Sender: FDA-Public Use
  Company Number: GB-BRISTOL-MYERS SQUIBB COMPANY-2023-131138

PATIENT
  Age: 18 Year
  Sex: Female
  Weight: 56 kg

DRUGS (7)
  1. OPDIVO [Suspect]
     Active Substance: NIVOLUMAB
     Indication: Product used for unknown indication
     Dosage: CYCLE 1
     Dates: start: 20230714
  2. OPDIVO [Suspect]
     Active Substance: NIVOLUMAB
     Dosage: CYCLE 2
     Dates: start: 20230802
  3. YERVOY [Suspect]
     Active Substance: IPILIMUMAB
     Indication: Product used for unknown indication
     Dosage: CYCLE 1
     Dates: start: 20230714
  4. YERVOY [Suspect]
     Active Substance: IPILIMUMAB
     Dosage: CYCLE 2
     Dates: start: 20230802
  5. OXYCODONE [Concomitant]
     Active Substance: OXYCODONE
     Indication: Analgesic therapy
     Dosage: FREQUENCY- 5MG EVERY 3 HOURS AS NEEDED, IMMEDIATE RELEASE
     Route: 048
     Dates: start: 20230714
  6. ONDANSETRON [Concomitant]
     Active Substance: ONDANSETRON
     Indication: Illness
     Dosage: FREQUENCY- 8MG TABLETS THREE TIMES EACH DAY IF NEEDED, BUT WOULD HAVE USED INTERMITTENTLY THROUGHOUT
     Route: 048
     Dates: start: 20230714
  7. FENTANYL [Concomitant]
     Active Substance: FENTANYL
     Indication: Analgesic therapy
     Dosage: FREQUENCY- 12 MICROGRAM PATCHES EVERY 3 DAYS
     Route: 061
     Dates: start: 20230714

REACTIONS (1)
  - Malignant neoplasm progression [Fatal]
